FAERS Safety Report 21568016 (Version 1)
Quarter: 2022Q4

REPORT INFORMATION
  Report Type: Report from Study
  Country: US (occurrence: US)
  Receive Date: 20221108
  Receipt Date: 20221108
  Transmission Date: 20230113
  Serious: No
  Sender: FDA-Public Use
  Company Number: US-ABBVIE-4134167

PATIENT
  Sex: Female

DRUGS (4)
  1. HUMIRA [Suspect]
     Active Substance: ADALIMUMAB
     Indication: Rheumatoid arthritis
     Dosage: CITRATE FREE
     Route: 058
  2. HUMIRA [Suspect]
     Active Substance: ADALIMUMAB
     Indication: Crohn^s disease
  3. COVID-19 vaccine [Concomitant]
     Indication: COVID-19 immunisation
     Dosage: ONE, ONE, ONCE 1ST DOSE
     Route: 030
     Dates: start: 2021, end: 2021
  4. COVID-19 vaccine [Concomitant]
     Indication: COVID-19 immunisation
     Dosage: ONE, ONE, ONCE 2ND DOSE
     Route: 030
     Dates: start: 2021, end: 2021

REACTIONS (4)
  - Diarrhoea [Unknown]
  - Infection parasitic [Unknown]
  - Condition aggravated [Unknown]
  - Vaginal infection [Unknown]
